FAERS Safety Report 18422263 (Version 1)
Quarter: 2020Q4

REPORT INFORMATION
  Report Type: Spontaneous
  Country: FR (occurrence: FR)
  Receive Date: 20201023
  Receipt Date: 20201023
  Transmission Date: 20210114
  Serious: Yes (Other)
  Sender: FDA-Public Use
  Company Number: FR-FERRINGPH-2020FE07300

PATIENT
  Age: 3 Decade
  Sex: Male

DRUGS (1)
  1. MINIRINMELT [Suspect]
     Active Substance: DESMOPRESSIN ACETATE
     Indication: DIABETES INSIPIDUS
     Dosage: FOR 6 DAYS IN 2005 OR 2006
     Route: 065

REACTIONS (4)
  - Blood pressure decreased [Recovered/Resolved]
  - Thirst [Recovered/Resolved]
  - Insomnia [Recovered/Resolved]
  - Drug ineffective [Recovered/Resolved]
